FAERS Safety Report 16966419 (Version 3)
Quarter: 2019Q4

REPORT INFORMATION
  Report Type: Spontaneous
  Country: US (occurrence: US)
  Receive Date: 20191028
  Receipt Date: 20191218
  Transmission Date: 20200122
  Serious: Yes (Life-Threatening, Other)
  Sender: FDA-Public Use
  Company Number: US-PFIZER INC-2019350186

PATIENT
  Age: 36 Year
  Sex: Male

DRUGS (1)
  1. BOSULIF [Suspect]
     Active Substance: BOSUTINIB MONOHYDRATE
     Indication: ACUTE MYELOID LEUKAEMIA
     Dosage: 400 MG, DAILY (TAKE 4 (100MG) TABLET PO EVERY DAY)
     Route: 048

REACTIONS (4)
  - Product use in unapproved indication [Unknown]
  - Terminal state [Unknown]
  - Product dose omission [Unknown]
  - Off label use [Unknown]
